FAERS Safety Report 7209340-4 (Version None)
Quarter: 2010Q4

REPORT INFORMATION
  Report Type: 
  Country: None (occurrence: None)
  Receive Date: 20101223
  Receipt Date: 20101213
  Transmission Date: 20110411
  Serious: Yes (Hospitalization)
  Sender: FDA-Public Use
  Company Number: IDA-00473

PATIENT
  Age: 55 Year
  Sex: Male

DRUGS (7)
  1. NEXIUM [Suspect]
     Indication: PRODUCT USED FOR UNKNOWN INDICATION
     Dosage: ORAL FORMULATION
     Route: 048
  2. PROPRANOLOL [Suspect]
     Indication: PRODUCT USED FOR UNKNOWN INDICATION
     Dosage: ORAL FORMULATION
     Route: 048
  3. LEVEMIR [Suspect]
     Indication: PRODUCT USED FOR UNKNOWN INDICATION
  4. HUMALOG [Suspect]
     Indication: PRODUCT USED FOR UNKNOWN INDICATION
  5. INEGY (EZETIMIBE, SIMVASTATIN) [Suspect]
     Indication: PRODUCT USED FOR UNKNOWN INDICATION
     Dosage: ORAL FORMULATION
     Route: 048
  6. DI-ANTALVIC (DEXTROPROPOXYPHENE, PARACETAMOL) [Suspect]
     Indication: PRODUCT USED FOR UNKNOWN INDICATION
     Dosage: ORAL FORMULATION
     Route: 048
  7. KARDEGIC (ACETYLSALICYLATE LYSINE) [Concomitant]

REACTIONS (2)
  - ECZEMA [None]
  - RASH MACULO-PAPULAR [None]
